FAERS Safety Report 4538286-5 (Version None)
Quarter: 2004Q4

REPORT INFORMATION
  Report Type: 
  Country: None (occurrence: None)
  Receive Date: 20041223
  Receipt Date: 20041223
  Transmission Date: 20050328
  Serious: Yes (Hospitalization)
  Sender: FDA-Public Use
  Company Number: None

PATIENT
  Sex: Male
  Weight: 80 kg

DRUGS (12)
  1. DOXERCALCIFEROL [Suspect]
     Indication: PANCREATIC CARCINOMA
     Dosage: 10 MCG 3X WEEK
     Dates: start: 20040818, end: 20040910
  2. DOXETAXEL [Suspect]
     Dosage: 60 MG WKLY
     Dates: start: 20040818, end: 20040903
  3. COMPAZINE [Concomitant]
  4. DOLASETRON [Concomitant]
  5. FENTANYL [Concomitant]
  6. MIROLAX [Concomitant]
  7. ACCUPRIL [Concomitant]
  8. PREVACID [Concomitant]
  9. GLYBURIDE [Concomitant]
  10. LASIX [Concomitant]
  11. GLUCOPHAGE [Concomitant]
  12. ZOFRAN [Concomitant]

REACTIONS (2)
  - ANAEMIA [None]
  - DEHYDRATION [None]
